FAERS Safety Report 26175153 (Version 1)
Quarter: 2025Q4

REPORT INFORMATION
  Report Type: Spontaneous
  Country: ZA (occurrence: ZA)
  Receive Date: 20251218
  Receipt Date: 20251218
  Transmission Date: 20260117
  Serious: Yes (Other)
  Sender: BAUSCH AND LOMB
  Company Number: ZA-ALFASIGMA-2025-AER-08938

PATIENT

DRUGS (1)
  1. XIFAXAN [Suspect]
     Active Substance: RIFAXIMIN
     Indication: Product used for unknown indication
     Route: 065

REACTIONS (5)
  - Chronic hepatitis B [Unknown]
  - Hepatitis D [Unknown]
  - Hepatic cirrhosis [Unknown]
  - Liver function test abnormal [Unknown]
  - Ascites [Unknown]
